FAERS Safety Report 8968377 (Version 1)
Quarter: 2012Q4

REPORT INFORMATION
  Report Type: 
  Country: US (occurrence: US)
  Receive Date: 20121218
  Receipt Date: 20121218
  Transmission Date: 20130627
  Serious: No
  Sender: FDA-Public Use
  Company Number: US-BRISTOL-MYERS SQUIBB COMPANY-16766362

PATIENT
  Age: 24 Year
  Sex: Female

DRUGS (6)
  1. ABILIFY [Suspect]
     Dosage: 7mg dose increased to 10mg.therapy from about 6months to a year
  2. ZOLOFT [Concomitant]
  3. KLONOPIN [Concomitant]
  4. HUMIRA [Concomitant]
  5. FOLIC ACID [Concomitant]
  6. IRON [Concomitant]

REACTIONS (1)
  - Restlessness [Unknown]
